FAERS Safety Report 9069179 (Version 1)
Quarter: 2013Q1

REPORT INFORMATION
  Report Type: Spontaneous
  Country: ES (occurrence: None)
  Receive Date: 20130122
  Receipt Date: 20130122
  Transmission Date: 20140127
  Serious: Yes (Hospitalization)
  Sender: FDA-Public Use
  Company Number: 2013AP000058

PATIENT
  Age: 14 Year
  Sex: Male

DRUGS (4)
  1. MONTELUKAST [Suspect]
     Indication: ASTHMA
  2. CORTICOSTEROIDS (CORTICOSTEROIDS) [Concomitant]
  3. MONTELUKAST [Concomitant]
  4. SALBUTAMOL (SALBUTAMOL) [Concomitant]

REACTIONS (3)
  - Abnormal behaviour [None]
  - Aggression [None]
  - Suicidal ideation [None]
